FAERS Safety Report 9210007 (Version 1)
Quarter: 2012Q4

REPORT INFORMATION
  Report Type: 
  Country: CH (occurrence: CH)
  Receive Date: 20120903
  Receipt Date: 20120903
  Transmission Date: 20130627
  Serious: Yes (Other)
  Sender: FDA-Public Use
  Company Number: PHHY2012CH075030

PATIENT
  Age: 72 Year
  Sex: Male
  Weight: 60 kg

DRUGS (24)
  1. ZOMETA [Suspect]
     Dosage: 4 mg once per month
     Route: 042
     Dates: start: 20120120
  2. ZOMETA [Suspect]
     Dosage: 4 mg once per month
     Route: 042
     Dates: start: 20120223
  3. ZOMETA [Suspect]
     Dosage: 4 mg once per month
     Route: 042
     Dates: start: 20120322
  4. ZOMETA [Suspect]
     Dosage: 4 mg once per month
     Route: 042
     Dates: start: 20120419
  5. VELCADE [Suspect]
     Indication: MULTIPLE MYELOMA
     Dosage: 2.2 mg, First cycle (On day 1, 4, 8, 11, 22, 25, 29, 32)
     Route: 042
     Dates: start: 20120305, end: 20120405
  6. VELCADE [Suspect]
     Dosage: 2.2 mg, Second cycle (On day: 1, 4, and 8)
     Route: 042
     Dates: start: 20120416, end: 20120423
  7. PREDNISON [Concomitant]
     Indication: MULTIPLE MYELOMA
     Dosage: 60 mg, First cycle: 60mg on day 1, 4, 8, 11
     Route: 048
     Dates: start: 20120305, end: 20120405
  8. PREDNISON [Concomitant]
     Dosage: 100 mg, Second cycle: 100mg on day 1, 4, 8
     Route: 048
     Dates: start: 20120416, end: 20120423
  9. ALKERAN [Concomitant]
     Indication: MULTIPLE MYELOMA
     Dosage: 10 mg, First cycle: 10mg on day 1 and 4
     Route: 048
     Dates: start: 20120305
  10. ALKERAN [Concomitant]
     Dosage: 8 mg, First cycle: 8mg on day 8 and 11
     Route: 048
     Dates: end: 20120405
  11. ALKERAN [Concomitant]
     Dosage: 14 mg, Second cycle: 14mg on day 1 and 4
     Route: 048
     Dates: start: 20120416
  12. ALKERAN [Concomitant]
     Dosage: 16 mg, Second cycle: 16mg on day 8
     Route: 048
     Dates: end: 20120423
  13. NAVOBAN [Concomitant]
     Dosage: 2 mg, First cycle: 2mg on day 1,4,8,11
     Route: 042
     Dates: start: 20120305
  14. NAVOBAN [Concomitant]
     Dosage: 5 mg, First cycle: 5mg on day 22,25,29,32
     Route: 042
     Dates: end: 20120405
  15. NAVOBAN [Concomitant]
     Dosage: 5 mg, Second cycle: 5mg on day 1,4,8
     Route: 042
     Dates: start: 20120416, end: 20120423
  16. SOLU-MEDROL [Concomitant]
     Dosage: 1.25 mg, once, First cycle: on day 4
     Route: 042
     Dates: start: 20120308, end: 20120308
  17. OXYCONTIN [Concomitant]
     Dosage: 20 mg, BID
     Route: 048
  18. VALTREX [Concomitant]
     Dosage: 500 mg, BID
     Route: 048
  19. PANTOZOL [Concomitant]
     Dosage: 20 mg, QD
     Route: 048
  20. CALCIMAGON-D3 [Concomitant]
     Dosage: 1 DF, QD
     Route: 048
     Dates: start: 20120416
  21. ASPIRIN CARDIO [Concomitant]
     Dosage: 100 mg, QD
     Route: 048
  22. DAFALGAN [Concomitant]
     Dosage: 500 mg, PRN
  23. IMPORTAL [Concomitant]
     Dosage: UNK UKN, PRN
  24. MOTILIUM [Concomitant]
     Dosage: UNK UKN, PRN

REACTIONS (11)
  - Acute febrile neutrophilic dermatosis [Recovering/Resolving]
  - Sensory disturbance [Recovering/Resolving]
  - Polyneuropathy [Recovering/Resolving]
  - Skin reaction [Recovering/Resolving]
  - Leukocytosis [Recovered/Resolved]
  - Pain in extremity [Recovering/Resolving]
  - Hypoaesthesia [Recovering/Resolving]
  - Back pain [Unknown]
  - Arthralgia [Recovering/Resolving]
  - Skin plaque [Recovering/Resolving]
  - Rash erythematous [Recovering/Resolving]
